FAERS Safety Report 19948427 (Version 1)
Quarter: 2021Q4

REPORT INFORMATION
  Report Type: Spontaneous
  Country: US (occurrence: US)
  Receive Date: 20211012
  Receipt Date: 20211012
  Transmission Date: 20220303
  Serious: Yes (Other)
  Sender: FDA-Public Use
  Company Number: US-PERRIGO-21US029094

PATIENT
  Age: 29 Year
  Sex: Male
  Weight: 108.84 kg

DRUGS (2)
  1. MINOXIDIL [Suspect]
     Active Substance: MINOXIDIL
     Indication: Hair growth rate abnormal
     Dosage: UNKNOWN, UNKNOWN
     Route: 061
     Dates: start: 202106, end: 20210930
  2. FINASTERIDE [Concomitant]
     Active Substance: FINASTERIDE
     Indication: Hair growth rate abnormal
     Dosage: UNKNOWN, UNKNOWN
     Route: 048
     Dates: start: 202106, end: 20210930

REACTIONS (4)
  - Suicidal ideation [Recovering/Resolving]
  - Depression [Not Recovered/Not Resolved]
  - Mood swings [Recovering/Resolving]
  - Gynaecomastia [Not Recovered/Not Resolved]

NARRATIVE: CASE EVENT DATE: 20210601
